FAERS Safety Report 11501330 (Version 1)
Quarter: 2015Q3

REPORT INFORMATION
  Report Type: Spontaneous
  Country: US (occurrence: US)
  Receive Date: 20150914
  Receipt Date: 20150914
  Transmission Date: 20151125
  Serious: Yes (Other)
  Sender: FDA-Public Use
  Company Number: US-UNICHEM LABORATORIES LIMITED-UCM201509-000790

PATIENT
  Sex: Male
  Weight: 117.93 kg

DRUGS (3)
  1. HYDROCHOLOTHIAZIDE 25 MG TABLET [Suspect]
     Active Substance: HYDROCHLOROTHIAZIDE
     Indication: HYPERTENSION
     Route: 048
     Dates: end: 20150903
  2. LISINOPRIL. [Concomitant]
     Active Substance: LISINOPRIL
     Indication: CEREBRAL THROMBOSIS
  3. WARFARIN [Concomitant]
     Active Substance: WARFARIN
     Indication: ANTICOAGULANT THERAPY

REACTIONS (5)
  - Screaming [Unknown]
  - Low density lipoprotein increased [Unknown]
  - Crying [Unknown]
  - Headache [Unknown]
  - Mass excision [Unknown]
